FAERS Safety Report 8022428-3 (Version None)
Quarter: 2012Q1

REPORT INFORMATION
  Report Type: 
  Country: None (occurrence: None)
  Receive Date: 20120104
  Receipt Date: 20120103
  Transmission Date: 20120608
  Serious: Yes (Other)
  Sender: FDA-Public Use
  Company Number: US-PFIZER INC-2012001067

PATIENT
  Sex: Male
  Weight: 68.027 kg

DRUGS (2)
  1. VIAGRA [Suspect]
     Dosage: 50 MG, UNK
     Route: 048
     Dates: start: 20120102
  2. VIAGRA [Suspect]
     Indication: SEXUAL DYSFUNCTION
     Dosage: 25 MG, UNK
     Route: 048
     Dates: start: 20120102

REACTIONS (2)
  - ERECTION INCREASED [None]
  - EJACULATION DISORDER [None]
